FAERS Safety Report 15019403 (Version 1)
Quarter: 2018Q2

REPORT INFORMATION
  Report Type: Spontaneous
  Country: IE (occurrence: IE)
  Receive Date: 20180617
  Receipt Date: 20180617
  Transmission Date: 20180711
  Serious: Yes (Death, Hospitalization)
  Sender: FDA-Public Use
  Company Number: PHHY2018IE020960

PATIENT
  Age: 56 Year
  Sex: Female

DRUGS (1)
  1. BISOPROLOL [Suspect]
     Active Substance: BISOPROLOL
     Indication: VENTRICULAR FIBRILLATION
     Dosage: 10 MG, QD
     Route: 065

REACTIONS (2)
  - Ventricular fibrillation [Fatal]
  - Condition aggravated [Fatal]
